FAERS Safety Report 9210485 (Version 3)
Quarter: 2021Q1

REPORT INFORMATION
  Report Type: Spontaneous
  Country: JP (occurrence: JP)
  Receive Date: 20130404
  Receipt Date: 20210329
  Transmission Date: 20210420
  Serious: Yes (Other)
  Sender: FDA-Public Use
  Company Number: JP-BRISTOL-MYERS SQUIBB COMPANY-18714063

PATIENT
  Age: 68 Year
  Sex: Male

DRUGS (1)
  1. KENACORT?A [Suspect]
     Active Substance: TRIAMCINOLONE ACETONIDE
     Indication: PROPHYLAXIS
     Dosage: 2 MG, UNK
     Route: 050

REACTIONS (2)
  - Gastric ulcer [Recovered/Resolved]
  - Cytomegalovirus infection [Recovered/Resolved]
